FAERS Safety Report 8861728 (Version 1)
Quarter: 2012Q4

REPORT INFORMATION
  Report Type: Spontaneous
  Country: US (occurrence: None)
  Receive Date: 20121025
  Receipt Date: 20121025
  Transmission Date: 20130627
  Serious: Yes (Other)
  Sender: FDA-Public Use
  Company Number: None

PATIENT
  Age: 42 Year
  Sex: Female
  Weight: 43 kg

DRUGS (1)
  1. ROC RETINOL CORREXION DEEP WRINTKLE NIGHT CREAML [Suspect]
     Indication: WRINKLES
     Dosage: small amount, 3x, Topical
     Route: 061

REACTIONS (4)
  - Application site burn [None]
  - Chemical injury [None]
  - Swollen tongue [None]
  - Pharyngeal oedema [None]
